FAERS Safety Report 8121263-5 (Version None)
Quarter: 2012Q1

REPORT INFORMATION
  Report Type: 
  Country: None (occurrence: None)
  Receive Date: 20120208
  Receipt Date: 20120128
  Transmission Date: 20120608
  Serious: Yes (Hospitalization, Other)
  Sender: FDA-Public Use
  Company Number: US-BAYER-2011-029340

PATIENT
  Age: 33 Year
  Sex: Female

DRUGS (4)
  1. VALIUM [Concomitant]
     Indication: MUSCLE RELAXANT THERAPY
     Dosage: 5 MG, UNK
     Route: 048
     Dates: start: 20070529
  2. ULTRAM ER [Concomitant]
     Indication: PAIN
     Dosage: 100 MG, UNK
     Route: 048
     Dates: start: 20070529
  3. PERCOCET [Concomitant]
  4. YASMIN [Suspect]
     Indication: CONTRACEPTION
     Dosage: UNK
     Dates: start: 20070401, end: 20070501

REACTIONS (9)
  - THROMBOSIS [None]
  - EMOTIONAL DISTRESS [None]
  - PAIN [None]
  - FEAR OF DISEASE [None]
  - INJURY [None]
  - DEEP VEIN THROMBOSIS [None]
  - ANXIETY [None]
  - EMBOLISM [None]
  - ANHEDONIA [None]
